FAERS Safety Report 8377474-7 (Version None)
Quarter: 2012Q2

REPORT INFORMATION
  Report Type: 
  Country: None (occurrence: None)
  Receive Date: 20120522
  Receipt Date: 20120315
  Transmission Date: 20120825
  Serious: No
  Sender: FDA-Public Use
  Company Number: US-ASTRAZENECA-2012SE13837

PATIENT
  Age: 50 Year
  Sex: Female
  Weight: 60.8 kg

DRUGS (9)
  1. OMEPRAZOLE [Suspect]
     Indication: GASTROOESOPHAGEAL REFLUX DISEASE
     Route: 048
  2. ALPRAZOLAM [Concomitant]
     Indication: ANXIETY
  3. XANAX [Concomitant]
  4. CRESTOR [Suspect]
     Indication: BLOOD CHOLESTEROL INCREASED
     Route: 048
  5. GABAPENTIN [Concomitant]
     Indication: NEURALGIA
  6. PROAIR HFA [Concomitant]
     Indication: CHRONIC OBSTRUCTIVE PULMONARY DISEASE
  7. PROAIR HFA [Concomitant]
     Indication: ASTHMA
  8. ALBUTEROL [Concomitant]
  9. AMITRIPTYLINE HCL [Concomitant]

REACTIONS (7)
  - EAR PAIN [None]
  - RHINITIS [None]
  - NASOPHARYNGITIS [None]
  - OROPHARYNGEAL PAIN [None]
  - THROAT IRRITATION [None]
  - SINUS HEADACHE [None]
  - TEMPOROMANDIBULAR JOINT SYNDROME [None]
